FAERS Safety Report 5778231-8 (Version None)
Quarter: 2008Q2

REPORT INFORMATION
  Report Type: 
  Country: None (occurrence: None)
  Receive Date: 20080619
  Receipt Date: 20080616
  Transmission Date: 20081010
  Serious: No
  Sender: FDA-Public Use
  Company Number: US-BAYER-200825770NA

PATIENT
  Sex: Female

DRUGS (1)
  1. MIRENA [Suspect]
     Indication: DRUG USE FOR UNKNOWN INDICATION
     Route: 015
     Dates: start: 20080509, end: 20080511

REACTIONS (4)
  - AXILLARY PAIN [None]
  - CYST [None]
  - RASH [None]
  - SWEAT GLAND INFECTION [None]
